FAERS Safety Report 25851510 (Version 1)
Quarter: 2025Q3

REPORT INFORMATION
  Report Type: Spontaneous
  Country: US (occurrence: None)
  Receive Date: 20250925
  Receipt Date: 20250925
  Transmission Date: 20251021
  Serious: Yes (Disabling)
  Sender: FDA-CTU
  Company Number: None

PATIENT
  Sex: Female

DRUGS (1)
  1. WEGOVY [Suspect]
     Active Substance: SEMAGLUTIDE
     Indication: Obesity

REACTIONS (4)
  - Lethargy [None]
  - Weight increased [None]
  - Nasal congestion [None]
  - Paradoxical drug reaction [None]

NARRATIVE: CASE EVENT DATE: 20250704
